FAERS Safety Report 22743624 (Version 4)
Quarter: 2024Q1

REPORT INFORMATION
  Report Type: Report from Study
  Country: BR (occurrence: BR)
  Receive Date: 20230724
  Receipt Date: 20240111
  Transmission Date: 20240410
  Serious: Yes (Hospitalization)
  Sender: FDA-Public Use
  Company Number: BR-JNJFOC-20230737994

PATIENT
  Age: 75 Year
  Sex: Female
  Weight: 54 kg

DRUGS (3)
  1. GOLIMUMAB [Suspect]
     Active Substance: GOLIMUMAB
     Indication: Rheumatoid arthritis
     Route: 058
     Dates: start: 20221104, end: 202308
  2. GOLIMUMAB [Suspect]
     Active Substance: GOLIMUMAB
  3. GOLIMUMAB [Suspect]
     Active Substance: GOLIMUMAB

REACTIONS (3)
  - Skin infection [Recovered/Resolved]
  - Decreased immune responsiveness [Unknown]
  - Drug ineffective [Unknown]

NARRATIVE: CASE EVENT DATE: 20230501
